FAERS Safety Report 9305258 (Version 1)
Quarter: 2013Q2

REPORT INFORMATION
  Report Type: Spontaneous
  Country: US (occurrence: None)
  Receive Date: 20130520
  Receipt Date: 20130520
  Transmission Date: 20140414
  Serious: No
  Sender: FDA-Public Use
  Company Number: 2013-00095

PATIENT
  Age: 63 Year
  Sex: Male

DRUGS (2)
  1. ZICAM COLD REMEDY [Suspect]
     Indication: NASOPHARYNGITIS
     Dosage: 1 CHEWABLE EVERY 3 HOURS 4-5 DAYS
     Dates: start: 201302
  2. UNKNOWN CHOLESTEROL MEDICATION [Concomitant]

REACTIONS (1)
  - Ageusia [None]
